FAERS Safety Report 9215298 (Version 2)
Quarter: 2013Q3

REPORT INFORMATION
  Report Type: Spontaneous
  Country: US (occurrence: US)
  Receive Date: 20130405
  Receipt Date: 20130912
  Transmission Date: 20140515
  Serious: Yes (Hospitalization)
  Sender: FDA-Public Use
  Company Number: US-GLAXOSMITHKLINE-A1018941A

PATIENT
  Age: 77 Year
  Sex: Male

DRUGS (1)
  1. VENTOLIN [Suspect]
     Indication: PRODUCT USED FOR UNKNOWN INDICATION
     Dosage: 90MCG UNKNOWN
     Route: 055
     Dates: start: 20111222

REACTIONS (5)
  - Depressed level of consciousness [Unknown]
  - Immobile [Unknown]
  - Amnesia [Unknown]
  - Inhalation therapy [Unknown]
  - Dyspnoea [Unknown]
